FAERS Safety Report 21418164 (Version 1)
Quarter: 2022Q4

REPORT INFORMATION
  Report Type: Spontaneous
  Country: DE (occurrence: DE)
  Receive Date: 20221006
  Receipt Date: 20221006
  Transmission Date: 20230113
  Serious: Yes (Hospitalization)
  Sender: FDA-Public Use
  Company Number: DE-ADRED-08172-01

PATIENT
  Age: 76 Year
  Sex: Female
  Weight: 62 kg

DRUGS (1)
  1. IBUPROFEN [Suspect]
     Active Substance: IBUPROFEN
     Indication: Product used for unknown indication
     Dosage: 600 MG
     Route: 065

REACTIONS (6)
  - Chills [Unknown]
  - Pain [Unknown]
  - Flank pain [Unknown]
  - Acute kidney injury [Unknown]
  - Constipation [Unknown]
  - Hydronephrosis [Unknown]
